FAERS Safety Report 4678297-2 (Version None)
Quarter: 2005Q2

REPORT INFORMATION
  Report Type: 
  Country: None (occurrence: None)
  Receive Date: 20050527
  Receipt Date: 20050518
  Transmission Date: 20051028
  Serious: Yes (Other)
  Sender: FDA-Public Use
  Company Number: 2005076870

PATIENT
  Age: 66 Year
  Sex: Male
  Weight: 88.4514 kg

DRUGS (5)
  1. LIPITOR [Suspect]
     Indication: ROUTINE HEALTH MAINTENANCE
     Dosage: 10 MG 910 MG, 1 IN 1 D), ORAL
     Route: 048
     Dates: end: 20040515
  2. LIPITOR [Suspect]
     Indication: THROMBOSIS PROPHYLAXIS
     Dosage: 10 MG 910 MG, 1 IN 1 D), ORAL
     Route: 048
     Dates: end: 20040515
  3. ASPIRIN [Concomitant]
  4. INSULIN [Concomitant]
  5. VITAMINS (VITAMINS) [Concomitant]

REACTIONS (7)
  - ASTHENIA [None]
  - BLOOD THYROID STIMULATING HORMONE DECREASED [None]
  - DYSSTASIA [None]
  - MOBILITY DECREASED [None]
  - MUSCLE SPASMS [None]
  - MYALGIA [None]
  - PAIN IN EXTREMITY [None]
